FAERS Safety Report 8810309 (Version 1)
Quarter: 2012Q4

REPORT INFORMATION
  Report Type: 
  Country: MY (occurrence: MY)
  Receive Date: 20120926
  Receipt Date: 20120926
  Transmission Date: 20130627
  Serious: Yes (Death, Other)
  Sender: FDA-Public Use
  Company Number: PHHO2004MY07651

PATIENT
  Sex: Male

DRUGS (4)
  1. GLIVEC [Suspect]
     Indication: CHRONIC MYELOID LEUKAEMIA
     Dosage: 600 mg, QD
     Route: 048
     Dates: start: 20040128
  2. ALLOPURINOL [Concomitant]
     Indication: GOUT
     Dosage: 300 mg, QD
     Dates: start: 20031114
  3. VASTAREL [Concomitant]
     Indication: MYOCARDIAL ISCHAEMIA
     Dosage: 20 mg, UNK
     Dates: start: 20031114
  4. OMEPRAZOLE [Concomitant]
     Indication: GASTRIC ULCER
     Dosage: 20 mg, BID
     Dates: start: 20031114

REACTIONS (5)
  - Blast crisis in myelogenous leukaemia [Fatal]
  - Chronic myeloid leukaemia [Fatal]
  - Malignant neoplasm progression [Fatal]
  - Central nervous system lesion [Unknown]
  - Cardiac failure [Unknown]
